FAERS Safety Report 25431879 (Version 3)
Quarter: 2025Q4

REPORT INFORMATION
  Report Type: Report from Study
  Country: EU (occurrence: EU)
  Receive Date: 20250613
  Receipt Date: 20251023
  Transmission Date: 20260117
  Serious: No
  Sender: JOHNSON AND JOHNSON
  Company Number: EU-JNJFOC-20240720895

PATIENT
  Age: 27 Year
  Sex: Male

DRUGS (1)
  1. SPRAVATO [Suspect]
     Active Substance: ESKETAMINE
     Indication: Depression
     Dosage: 17/DEC/2021,22/DEC/2021,24/DEC/2021,29/DEC/2021,31/DEC/2021,05/JAN/2022,07/JAN/2022,14/JAN/2022,28/J
     Route: 045
     Dates: start: 20211215, end: 20220701

REACTIONS (1)
  - Depression [Recovering/Resolving]

NARRATIVE: CASE EVENT DATE: 20221116
